APPROVED DRUG PRODUCT: BETOPTIC
Active Ingredient: BETAXOLOL HYDROCHLORIDE
Strength: EQ 0.5% BASE
Dosage Form/Route: SOLUTION/DROPS;OPHTHALMIC
Application: N019270 | Product #001 | TE Code: AT
Applicant: SANDOZ INC
Approved: Aug 30, 1985 | RLD: Yes | RS: Yes | Type: RX